FAERS Safety Report 10748960 (Version 1)
Quarter: 2015Q1

REPORT INFORMATION
  Report Type: Spontaneous
  Country: US (occurrence: None)
  Receive Date: 20150120
  Receipt Date: 20150120
  Transmission Date: 20150721
  Serious: No
  Sender: FDA-Public Use
  Company Number: AEGR000823

PATIENT
  Age: 36 Year
  Sex: Female
  Weight: 74.8 kg

DRUGS (7)
  1. ASPIRIN (ACETYLSALICYLIC ACID) [Concomitant]
     Active Substance: ASPIRIN
  2. CRESTOR (ROSUVASTATIN CALCIUM [Concomitant]
  3. ZETIA [Concomitant]
     Active Substance: EZETIMIBE
  4. JUXTAPID [Suspect]
     Active Substance: LOMITAPIDE MESYLATE
     Indication: TYPE IIA HYPERLIPIDAEMIA
     Dates: start: 20130416, end: 20140603
  5. DHEA (PRASTERONE) [Concomitant]
  6. ENDUR-ACIN (NICOTINIC ACID) [Concomitant]
  7. VITMIN E (TOCOPHEROL) [Concomitant]

REACTIONS (1)
  - Diarrhoea [None]

NARRATIVE: CASE EVENT DATE: 201406
